FAERS Safety Report 12144477 (Version 1)
Quarter: 2016Q1

REPORT INFORMATION
  Report Type: Spontaneous
  Country: US (occurrence: None)
  Receive Date: 20160303
  Receipt Date: 20160303
  Transmission Date: 20160526
  Serious: Yes (Other)
  Sender: FDA-Public Use
  Company Number: None

PATIENT
  Age: 16 Year
  Sex: Female
  Weight: 51.26 kg

DRUGS (3)
  1. ADVIL [Concomitant]
     Active Substance: IBUPROFEN
  2. DAILY VITAMIN [Concomitant]
     Active Substance: VITAMINS
  3. TAMIFLU [Suspect]
     Active Substance: OSELTAMIVIR PHOSPHATE
     Indication: INFLUENZA
     Dosage: ONE PILL TWICE DAILY TAKEN BY MOUTH
     Route: 048
     Dates: start: 20160217, end: 20160220

REACTIONS (8)
  - Delirium [None]
  - Disturbance in attention [None]
  - Educational problem [None]
  - Confusional state [None]
  - Suicidal ideation [None]
  - Hallucination [None]
  - Dizziness [None]
  - Psychiatric symptom [None]

NARRATIVE: CASE EVENT DATE: 20160219
